FAERS Safety Report 5258199-3 (Version None)
Quarter: 2007Q1

REPORT INFORMATION
  Report Type: 
  Country: None (occurrence: None)
  Receive Date: 20070307
  Receipt Date: 20070301
  Transmission Date: 20070707
  Serious: Yes (Other)
  Sender: FDA-Public Use
  Company Number: US-MERCK-0703USA00242

PATIENT
  Age: 68 Year
  Sex: Female

DRUGS (9)
  1. JANUVIA [Suspect]
     Indication: DIABETES MELLITUS INADEQUATE CONTROL
     Route: 048
     Dates: start: 20070201, end: 20070301
  2. METFORMIN [Concomitant]
     Route: 065
     Dates: end: 20070201
  3. METFORMIN [Concomitant]
     Route: 065
     Dates: start: 20070201, end: 20070201
  4. METFORMIN [Concomitant]
     Route: 065
     Dates: start: 20070201
  5. GLIPIZIDE [Concomitant]
     Route: 065
     Dates: end: 20070201
  6. GLIPIZIDE [Concomitant]
     Route: 065
     Dates: start: 20070201
  7. LIPITOR [Concomitant]
     Route: 065
  8. PROVERA [Concomitant]
     Route: 065
  9. ELAVIL [Concomitant]
     Route: 065

REACTIONS (1)
  - BLOOD GLUCOSE INCREASED [None]
